FAERS Safety Report 15630276 (Version 1)
Quarter: 2018Q4

REPORT INFORMATION
  Report Type: Spontaneous
  Country: US (occurrence: US)
  Receive Date: 20181117
  Receipt Date: 20181117
  Transmission Date: 20190205
  Serious: Yes (Other)
  Sender: FDA-Public Use
  Company Number: None

PATIENT
  Age: 49 Year
  Sex: Female
  Weight: 60.75 kg

DRUGS (8)
  1. BENADRYL [Concomitant]
     Active Substance: DIPHENHYDRAMINE HYDROCHLORIDE
  2. AZITHROMYCIN TABLETS USP 250MG [Suspect]
     Active Substance: AZITHROMYCIN
     Indication: TONSILLITIS BACTERIAL
     Dosage: 2 TABLET(S); 2 DAY 1, 1 DAY 2-5?
     Route: 048
     Dates: start: 20181115, end: 20181116
  3. DRAMAMINE [Concomitant]
     Active Substance: DIMENHYDRINATE
  4. VERAPAMIL HCR ER [Concomitant]
  5. CLONAZEPAM. [Concomitant]
     Active Substance: CLONAZEPAM
  6. VITAMIN C [Concomitant]
     Active Substance: ASCORBIC ACID
  7. TYLENOL [Concomitant]
     Active Substance: ACETAMINOPHEN
  8. CHLORPHENIRAMINE. [Concomitant]
     Active Substance: CHLORPHENIRAMINE

REACTIONS (6)
  - Therapy cessation [None]
  - Crying [None]
  - Fatigue [None]
  - Pulmonary congestion [None]
  - Feeling of despair [None]
  - Suicidal ideation [None]

NARRATIVE: CASE EVENT DATE: 20181115
